FAERS Safety Report 5258056-2 (Version None)
Quarter: 2007Q1

REPORT INFORMATION
  Report Type: 
  Country: None (occurrence: None)
  Receive Date: 20070307
  Receipt Date: 20070221
  Transmission Date: 20070707
  Serious: Yes (Other)
  Sender: FDA-Public Use
  Company Number: GB-ELI_LILLY_AND_COMPANY-GB200610004337

PATIENT
  Age: 29 Year
  Sex: Female

DRUGS (1)
  1. PROZAC [Suspect]
     Indication: DEPRESSED MOOD
     Dosage: 20 MG, DAILY (1/D)
     Route: 048
     Dates: start: 20060920, end: 20061020

REACTIONS (2)
  - ECCHYMOSIS [None]
  - GINGIVAL BLEEDING [None]
